FAERS Safety Report 9201570 (Version 1)
Quarter: 2013Q2

REPORT INFORMATION
  Report Type: Spontaneous
  Country: AU (occurrence: AU)
  Receive Date: 20130401
  Receipt Date: 20130401
  Transmission Date: 20140414
  Serious: Yes (Other)
  Sender: FDA-Public Use
  Company Number: AU-PFIZER INC-2013100744

PATIENT
  Sex: Female

DRUGS (2)
  1. LYRICA [Suspect]
     Indication: RESTLESS LEGS SYNDROME
     Dosage: 75 MG, 2X/DAY
  2. MADOPAR [Concomitant]
     Dosage: UNK

REACTIONS (4)
  - Feeling of despair [Unknown]
  - Off label use [Unknown]
  - Drug ineffective for unapproved indication [Unknown]
  - Restlessness [Unknown]
